FAERS Safety Report 8214615-6 (Version None)
Quarter: 2012Q1

REPORT INFORMATION
  Report Type: 
  Country: None (occurrence: None)
  Receive Date: 20120316
  Receipt Date: 20120307
  Transmission Date: 20120608
  Serious: Yes (Other)
  Sender: FDA-Public Use
  Company Number: US-JNJFOC-20120305182

PATIENT
  Sex: Male
  Weight: 101.15 kg

DRUGS (3)
  1. SULFASALAZINE [Concomitant]
     Route: 065
  2. REMICADE [Suspect]
     Route: 042
     Dates: start: 20111212
  3. REMICADE [Suspect]
     Indication: RHEUMATOID ARTHRITIS
     Dosage: SECOND DOSE OF REMICADE
     Route: 042
     Dates: start: 20120307

REACTIONS (7)
  - PALLOR [None]
  - HYPOTENSION [None]
  - HYPERSENSITIVITY [None]
  - INFECTED BITES [None]
  - OXYGEN SATURATION DECREASED [None]
  - HYPERHIDROSIS [None]
  - INFUSION RELATED REACTION [None]
